FAERS Safety Report 23590815 (Version 3)
Quarter: 2024Q4

REPORT INFORMATION
  Report Type: Spontaneous
  Country: DE (occurrence: DE)
  Receive Date: 20240304
  Receipt Date: 20241213
  Transmission Date: 20250115
  Serious: Yes (Death, Hospitalization, Other)
  Sender: SAMSUNG BIOEPIS
  Company Number: DE-ASTELLAS-2021US022517

PATIENT
  Age: 68 Year
  Sex: Male

DRUGS (36)
  1. INFLIXIMAB [Suspect]
     Active Substance: INFLIXIMAB
     Indication: Stomatitis
     Dosage: 425 MG, TWICE WEEKLY (D112)
     Route: 042
  2. INFLIXIMAB [Suspect]
     Active Substance: INFLIXIMAB
     Indication: Dermatitis
     Route: 042
  3. INFLIXIMAB [Suspect]
     Active Substance: INFLIXIMAB
     Indication: Dry eye
  4. INFLIXIMAB [Suspect]
     Active Substance: INFLIXIMAB
     Indication: Immunosuppressant drug therapy
  5. ANAKINRA [Suspect]
     Active Substance: ANAKINRA
     Indication: Dermatitis
     Dosage: 100 MG, ONCE DAILY (D203)?100 MILLIGRAM DAILY;
     Route: 058
  6. ANAKINRA [Suspect]
     Active Substance: ANAKINRA
     Indication: Stomatitis
  7. ANAKINRA [Suspect]
     Active Substance: ANAKINRA
     Indication: Dry eye
  8. ANAKINRA [Suspect]
     Active Substance: ANAKINRA
     Indication: Immunosuppressant drug therapy
  9. BENDAMUSTINE HYDROCHLORIDE [Suspect]
     Active Substance: BENDAMUSTINE HYDROCHLORIDE
     Indication: Follicular lymphoma stage IV
     Dosage: UNK UNK, CYCLIC, POWDER (EXCEPT DUSTING POWDER)
     Route: 042
     Dates: start: 2016
  10. BENDAMUSTINE HYDROCHLORIDE [Suspect]
     Active Substance: BENDAMUSTINE HYDROCHLORIDE
     Dosage: UNK UNK, CYCLIC, POWDER (EXCEPT DUSTING POWDER);
     Route: 042
     Dates: start: 2013
  11. CYCLOSPORINE [Suspect]
     Active Substance: CYCLOSPORINE
     Indication: Stomatitis
     Dosage: UNK UNK, UNKNOWN FREQ.
  12. CYCLOSPORINE [Suspect]
     Active Substance: CYCLOSPORINE
     Indication: Dry eye
  13. CYCLOSPORINE [Suspect]
     Active Substance: CYCLOSPORINE
     Indication: Dermatitis
  14. CYCLOSPORINE [Suspect]
     Active Substance: CYCLOSPORINE
     Indication: Immunosuppressant drug therapy
  15. OBINUTUZUMAB [Suspect]
     Active Substance: OBINUTUZUMAB
     Indication: Follicular lymphoma stage IV
     Dosage: 1000 MG, CYCLIC (D1, D8, D15 OF C1; D1 OF C2-6);
     Dates: start: 2017
  16. POLATUZUMAB VEDOTIN [Suspect]
     Active Substance: POLATUZUMAB VEDOTIN
     Indication: Follicular lymphoma stage IV
     Dosage: 1.8 MG/KG, CYCLIC (D1 OF C1-6)
     Dates: start: 2017
  17. PREDNISOLONE [Suspect]
     Active Substance: PREDNISOLONE
     Indication: Dry eye
  18. PREDNISOLONE [Suspect]
     Active Substance: PREDNISOLONE
     Indication: Dermatitis
     Dosage: 50 MG, ONCE DAILY (D161);
  19. PREDNISOLONE [Suspect]
     Active Substance: PREDNISOLONE
     Indication: Stomatitis
  20. PREDNISOLONE [Suspect]
     Active Substance: PREDNISOLONE
     Indication: Immunosuppressant drug therapy
     Dosage: 70 MG, ONCE DAILY (D173-179);
  21. PREDNISOLONE [Suspect]
     Active Substance: PREDNISOLONE
     Dosage: 40 MG, ONCE DAILY (D118-152);
  22. PREDNISOLONE [Suspect]
     Active Substance: PREDNISOLONE
  23. PREDNISOLONE [Suspect]
     Active Substance: PREDNISOLONE
     Dosage: 30 MG, ONCE DAILY (D159);
  24. PREDNISOLONE [Suspect]
     Active Substance: PREDNISOLONE
     Dosage: 100 MG, ONCE DAILY (D84) (D164)(78) (D106) (D107);
     Route: 042
  25. PREDNISOLONE [Suspect]
     Active Substance: PREDNISOLONE
     Dosage: 10 MG, ONCE DAILY (D77);
     Route: 042
  26. PREDNISOLONE [Suspect]
     Active Substance: PREDNISOLONE
     Dosage: 20 MG, ONCE DAILY (D86-100);
     Route: 048
  27. PREDNISOLONE [Suspect]
     Active Substance: PREDNISOLONE
     Dosage: 5 MG, ONCE DAILY (D186-239);
  28. PREDNISOLONE [Suspect]
     Active Substance: PREDNISOLONE
     Dosage: 180 MG, TOTAL DOSE (D106);
     Route: 042
  29. TACROLIMUS [Suspect]
     Active Substance: TACROLIMUS
     Indication: Dry eye
     Dosage: 1 MG, ONCE DAILY (D164);
     Route: 048
  30. TACROLIMUS [Suspect]
     Active Substance: TACROLIMUS
     Indication: Stomatitis
  31. TACROLIMUS [Suspect]
     Active Substance: TACROLIMUS
     Indication: Dermatitis
  32. TACROLIMUS [Suspect]
     Active Substance: TACROLIMUS
     Indication: Immunosuppressant drug therapy
  33. RITUXIMAB [Concomitant]
     Active Substance: RITUXIMAB
     Indication: Follicular lymphoma stage IV
     Dosage: UNK UNK, UNKNOWN FREQ;
     Dates: start: 2016
  34. RITUXIMAB [Concomitant]
     Active Substance: RITUXIMAB
     Dosage: UNK UNK, UNKNOWN FREQ.;
     Dates: start: 2013, end: 2015
  35. VENETOCLAX [Concomitant]
     Active Substance: VENETOCLAX
     Indication: Follicular lymphoma stage IV
     Dosage: UNK UNK, UNKNOWN FREQ.;
     Dates: start: 2016
  36. ATEZOLIZUMAB [Concomitant]
     Active Substance: ATEZOLIZUMAB
     Indication: Follicular lymphoma stage IV
     Dosage: 1200 MG, CYCLIC (D1 OF C2-6);
     Dates: start: 2017

REACTIONS (14)
  - Death [Fatal]
  - Oral fungal infection [Unknown]
  - Bacteraemia [Recovered/Resolved]
  - Opportunistic infection [Unknown]
  - Oral fungal infection [Recovered/Resolved]
  - Bronchopulmonary aspergillosis [Recovered/Resolved]
  - Rebound effect [Unknown]
  - Viral infection [Recovered/Resolved]
  - Dry eye [Unknown]
  - Erysipelas [Recovered/Resolved]
  - Immune system disorder [Unknown]
  - Stomatitis [Unknown]
  - Dermatitis [Unknown]
  - Product use in unapproved indication [Unknown]
